FAERS Safety Report 6814150-3 (Version None)
Quarter: 2010Q3

REPORT INFORMATION
  Report Type: 
  Country: None (occurrence: None)
  Receive Date: 20100702
  Receipt Date: 20100511
  Transmission Date: 20110219
  Serious: No
  Sender: FDA-Public Use
  Company Number: A0859159A

PATIENT
  Age: 42 Year
  Sex: Female

DRUGS (6)
  1. ADVAIR DISKUS 100/50 [Suspect]
     Indication: ASTHMA
     Dosage: 1PUFF TWICE PER DAY
     Route: 055
     Dates: start: 20100507
  2. ALBUTEROL [Concomitant]
  3. NEXIUM [Concomitant]
  4. SINGULAIR [Concomitant]
  5. XANAX [Concomitant]
  6. ZYRTEC [Concomitant]

REACTIONS (1)
  - DRUG INEFFECTIVE [None]
